FAERS Safety Report 5677873-8 (Version None)
Quarter: 2008Q1

REPORT INFORMATION
  Report Type: 
  Country: None (occurrence: None)
  Receive Date: 20080319
  Receipt Date: 20080304
  Transmission Date: 20080703
  Serious: Yes (Other)
  Sender: FDA-Public Use
  Company Number: 232287J08USA

PATIENT
  Age: 56 Year
  Sex: Female

DRUGS (8)
  1. REBIF [Suspect]
     Indication: MULTIPLE SCLEROSIS
     Dosage: 22 MCG, 3 IN 1 WEEKS, SUBCUTANEOUS ; 33 MCG, 3 IN 1 WEEKS, SUBCUTANEOUS
     Route: 058
     Dates: start: 20070129, end: 20080201
  2. REBIF [Suspect]
     Indication: MULTIPLE SCLEROSIS
     Dosage: 22 MCG, 3 IN 1 WEEKS, SUBCUTANEOUS ; 33 MCG, 3 IN 1 WEEKS, SUBCUTANEOUS
     Route: 058
     Dates: start: 20080201
  3. VERAPAMIL [Concomitant]
  4. VASOTEC [Concomitant]
  5. NEURONTIN [Concomitant]
  6. DETROL [Concomitant]
  7. DITROPAN (OXYBUTYNIN /005389017) [Concomitant]
  8. POTASSIUM CHLORIDE [Concomitant]

REACTIONS (4)
  - BENIGN NEOPLASM OF BLADDER [None]
  - HAEMORRHAGE URINARY TRACT [None]
  - THROMBOSIS [None]
  - URETHRAL OBSTRUCTION [None]
